FAERS Safety Report 15656998 (Version 2)
Quarter: 2018Q4

REPORT INFORMATION
  Report Type: Spontaneous
  Country: FR (occurrence: FR)
  Receive Date: 20181126
  Receipt Date: 20181205
  Transmission Date: 20190205
  Serious: Yes (Hospitalization)
  Sender: FDA-Public Use
  Company Number: FR-SAKK-2018SA149584AA

PATIENT
  Age: 69 Year
  Sex: Male

DRUGS (2)
  1. ZALTRAP [Suspect]
     Active Substance: ZIV-AFLIBERCEPT
     Indication: COLORECTAL CANCER METASTATIC
     Dosage: NP
     Route: 042
     Dates: start: 201606, end: 201611
  2. XARELTO [Suspect]
     Active Substance: RIVAROXABAN
     Indication: PULMONARY EMBOLISM
     Dosage: 15 MG, QD
     Route: 048
     Dates: end: 20161203

REACTIONS (2)
  - Melaena [Recovered/Resolved]
  - Gastric fistula [Recovered/Resolved]

NARRATIVE: CASE EVENT DATE: 20161203
